FAERS Safety Report 21136669 (Version 1)
Quarter: 2022Q3

REPORT INFORMATION
  Report Type: Spontaneous
  Country: US (occurrence: None)
  Receive Date: 20220726
  Receipt Date: 20220726
  Transmission Date: 20221026
  Serious: No
  Sender: FDA-Public Use
  Company Number: None

PATIENT
  Age: 67 Year
  Sex: Female
  Weight: 70.2 kg

DRUGS (5)
  1. PAXLOVID [Suspect]
     Active Substance: NIRMATRELVIR\RITONAVIR
     Indication: COVID-19 treatment
     Dates: start: 20220706, end: 20220706
  2. IBUPROFEN [Concomitant]
     Active Substance: IBUPROFEN
  3. AMITRIPTYLINE HCL [Concomitant]
  4. MULTI VITAMIN [Concomitant]
  5. DOCUSATE SODIUM [Concomitant]

REACTIONS (4)
  - Burning sensation [None]
  - Hypersensitivity [None]
  - Therapy interrupted [None]
  - Dysgeusia [None]

NARRATIVE: CASE EVENT DATE: 20220706
